FAERS Safety Report 4657961-5 (Version None)
Quarter: 2005Q2

REPORT INFORMATION
  Report Type: 
  Country: None (occurrence: None)
  Receive Date: 20050510
  Receipt Date: 20050502
  Transmission Date: 20051028
  Serious: Yes (Other)
  Sender: FDA-Public Use
  Company Number: 2005PK00784

PATIENT
  Age: 25168 Day
  Sex: Female

DRUGS (3)
  1. SEROQUEL [Suspect]
     Route: 048
     Dates: start: 20050127, end: 20050321
  2. SEROQUEL [Suspect]
     Route: 048
     Dates: start: 20050322
  3. EDRONAX [Concomitant]
     Indication: SCHIZOAFFECTIVE DISORDER
     Route: 048
     Dates: start: 20050203

REACTIONS (1)
  - COORDINATION ABNORMAL [None]
